FAERS Safety Report 23257480 (Version 6)
Quarter: 2025Q3

REPORT INFORMATION
  Report Type: Report from Study
  Country: US (occurrence: US)
  Receive Date: 20231204
  Receipt Date: 20250929
  Transmission Date: 20251020
  Serious: Yes (Other)
  Sender: MYLAN
  Company Number: US-MYLANLABS-2023M1113530

PATIENT
  Age: 44 Year
  Sex: Female
  Weight: 57.61 kg

DRUGS (20)
  1. GLATIRAMER ACETATE [Suspect]
     Active Substance: GLATIRAMER ACETATE
     Indication: Multiple sclerosis
     Route: 065
  2. GLATIRAMER ACETATE [Suspect]
     Active Substance: GLATIRAMER ACETATE
     Indication: Relapsing-remitting multiple sclerosis
  3. GLATIRAMER ACETATE [Suspect]
     Active Substance: GLATIRAMER ACETATE
  4. GLATIRAMER ACETATE [Suspect]
     Active Substance: GLATIRAMER ACETATE
     Route: 065
  5. GLATIRAMER ACETATE [Suspect]
     Active Substance: GLATIRAMER ACETATE
     Dosage: 40 MILLIGRAM, 3XW (THREE TIMES PER WEEK)
  6. GLATIRAMER ACETATE [Suspect]
     Active Substance: GLATIRAMER ACETATE
     Dosage: 40 MILLIGRAM, 3XW (THREE TIMES PER WEEK)
     Route: 065
  7. GLATIRAMER ACETATE [Suspect]
     Active Substance: GLATIRAMER ACETATE
     Dosage: 40 MILLIGRAM, 3XW (THREE TIMES PER WEEK)
     Route: 065
  8. GLATIRAMER ACETATE [Suspect]
     Active Substance: GLATIRAMER ACETATE
     Dosage: 40 MILLIGRAM, 3XW (THREE TIMES PER WEEK)
  9. GLATIRAMER ACETATE [Suspect]
     Active Substance: GLATIRAMER ACETATE
  10. GLATIRAMER ACETATE [Suspect]
     Active Substance: GLATIRAMER ACETATE
     Route: 058
  11. GLATIRAMER ACETATE [Suspect]
     Active Substance: GLATIRAMER ACETATE
     Route: 058
  12. GLATIRAMER ACETATE [Suspect]
     Active Substance: GLATIRAMER ACETATE
  13. GLATIRAMER ACETATE [Suspect]
     Active Substance: GLATIRAMER ACETATE
     Route: 058
  14. GLATIRAMER ACETATE [Suspect]
     Active Substance: GLATIRAMER ACETATE
  15. GLATIRAMER ACETATE [Suspect]
     Active Substance: GLATIRAMER ACETATE
     Route: 058
  16. GLATIRAMER ACETATE [Suspect]
     Active Substance: GLATIRAMER ACETATE
  17. GLATIRAMER ACETATE [Suspect]
     Active Substance: GLATIRAMER ACETATE
     Dosage: 40 MILLIGRAM, 3XW (THREE TIMES PER WEEK)
  18. GLATIRAMER ACETATE [Suspect]
     Active Substance: GLATIRAMER ACETATE
     Dosage: 40 MILLIGRAM, 3XW (THREE TIMES PER WEEK)
  19. GLATIRAMER ACETATE [Suspect]
     Active Substance: GLATIRAMER ACETATE
     Dosage: 40 MILLIGRAM, 3XW (THREE TIMES PER WEEK)
     Route: 058
  20. GLATIRAMER ACETATE [Suspect]
     Active Substance: GLATIRAMER ACETATE
     Dosage: 40 MILLIGRAM, 3XW (THREE TIMES PER WEEK)
     Route: 058

REACTIONS (6)
  - Multiple sclerosis [Unknown]
  - Stress [Unknown]
  - Injection site nodule [Recovered/Resolved]
  - Injection site mass [Recovered/Resolved]
  - Therapy interrupted [Unknown]
  - Product dose omission issue [Unknown]

NARRATIVE: CASE EVENT DATE: 20240619
